FAERS Safety Report 19254024 (Version 1)
Quarter: 2021Q2

REPORT INFORMATION
  Report Type: Spontaneous
  Country: CA (occurrence: CA)
  Receive Date: 20210513
  Receipt Date: 20210513
  Transmission Date: 20210717
  Serious: Yes (Death, Other)
  Sender: FDA-Public Use
  Company Number: CA-ACCORD-224737

PATIENT
  Age: 80 Year
  Sex: Male

DRUGS (38)
  1. SIMVASTATIN. [Suspect]
     Active Substance: SIMVASTATIN
     Indication: BLOOD CHOLESTEROL INCREASED
     Route: 048
  2. CEFTRIAXONE. [Suspect]
     Active Substance: CEFTRIAXONE
     Indication: BACTERIAL INFECTION
     Dosage: 1 EVERY 1 DAYS
     Route: 042
  3. INSULIN DEGLUDEC [Suspect]
     Active Substance: INSULIN DEGLUDEC
     Indication: DIABETES MELLITUS
     Route: 058
  4. SODIUM PHOSPHATE MONOBASIC (AN [Suspect]
     Active Substance: SODIUM PHOSPHATE, MONOBASIC, ANHYDROUS
     Indication: CONSTIPATION
     Dosage: AS REQUIRED
     Route: 054
  5. CALCITRIOL. [Suspect]
     Active Substance: CALCITRIOL
     Indication: VITAMIN D
     Dosage: NOT SPECIFIED
     Route: 048
  6. MACROGOL 3350 [Suspect]
     Active Substance: POLYETHYLENE GLYCOL 3350
     Indication: CONSTIPATION
     Dosage: 1 EVERY 1 DAYS
     Route: 048
  7. ALLOPURINOL. [Suspect]
     Active Substance: ALLOPURINOL
     Indication: BLOOD URIC ACID INCREASED
     Route: 048
  8. IPRATROPIUM [Suspect]
     Active Substance: IPRATROPIUM
     Indication: DYSPNOEA
     Dosage: 4 EVERY 1 DAYS
     Route: 055
  9. MELATONIN [Suspect]
     Active Substance: MELATONIN
     Indication: SLEEP DISORDER THERAPY
     Dosage: NOT SPECIFIED
     Route: 048
  10. SALBUTAMOL/SALBUTAMOL SULFATE [Suspect]
     Active Substance: ALBUTEROL
     Indication: CHRONIC OBSTRUCTIVE PULMONARY DISEASE
     Dosage: NOT SPECIFIED?4 EVERY 1 DAYS
     Route: 055
  11. AMIODARONE [Suspect]
     Active Substance: AMIODARONE
     Indication: DRUG THERAPY
     Route: 042
  12. HYDROMORPHONE/HYDROMORPHONE HYDROCHLORIDE [Suspect]
     Active Substance: HYDROMORPHONE
     Indication: ANALGESIC THERAPY
     Dosage: NOT SPECIFIED?1 EVERY 4 HOURS
     Route: 058
  13. LANSOPRAZOLE. [Suspect]
     Active Substance: LANSOPRAZOLE
     Indication: ANTACID THERAPY
     Dosage: 1 EVERY 1 DAYS
     Route: 048
  14. PHYTOMENADIONE [Suspect]
     Active Substance: PHYTONADIONE
     Indication: VITAMIN SUPPLEMENTATION
     Dosage: NOT SPECIFIED?AS REQUIRED
     Route: 042
  15. WARFARIN [Suspect]
     Active Substance: WARFARIN
     Indication: THROMBOSIS
     Route: 048
  16. ONDANSETRON [Suspect]
     Active Substance: ONDANSETRON
     Indication: VOMITING
     Dosage: 1 EVERY 8 HOURS
     Route: 042
  17. PARACETAMOL [Suspect]
     Active Substance: ACETAMINOPHEN
     Indication: ANALGESIC THERAPY
     Dosage: NOT SPECIFIED?1 EVERY 1 DAYS
     Route: 048
  18. AMIODARONE [Suspect]
     Active Substance: AMIODARONE
     Indication: VENTRICULAR FIBRILLATION
     Route: 042
  19. ARANESP [Suspect]
     Active Substance: DARBEPOETIN ALFA
     Indication: ANAEMIA
     Dosage: 1 EVERY 2 WEEKS
     Route: 042
  20. BISACODYL. [Suspect]
     Active Substance: BISACODYL
     Indication: CONSTIPATION
     Dosage: NOT SPECIFIED?AS REQUIRED
     Route: 054
  21. DOBUTAMINE [Suspect]
     Active Substance: DOBUTAMINE HYDROCHLORIDE
     Indication: CARDIOGENIC SHOCK
     Route: 042
  22. HEPARIN SODIUM\SODIUM CHLORIDE [Suspect]
     Active Substance: HEPARIN SODIUM\SODIUM CHLORIDE
     Indication: ANTICOAGULANT THERAPY
     Dosage: AS REQUIRED
     Route: 042
  23. LYPRESSIN [Suspect]
     Active Substance: LYPRESSIN
     Indication: DRUG THERAPY
     Route: 042
  24. MACROGOL 3350 [Suspect]
     Active Substance: POLYETHYLENE GLYCOL 3350
     Indication: CONSTIPATION
     Dosage: 1 EVERY 1 DAYS
     Route: 048
  25. BETAMETHASONE. [Suspect]
     Active Substance: BETAMETHASONE
     Indication: SWELLING
     Dosage: AS REQUIRED
     Route: 061
  26. INSULIN ASPART [Suspect]
     Active Substance: INSULIN ASPART
     Indication: DIABETES MELLITUS
     Route: 058
  27. DOBUTAMINE [Suspect]
     Active Substance: DOBUTAMINE HYDROCHLORIDE
     Indication: CARDIOGENIC SHOCK
     Route: 042
  28. HEPARIN SODIUM\SODIUM CHLORIDE [Suspect]
     Active Substance: HEPARIN SODIUM\SODIUM CHLORIDE
     Indication: ANTICOAGULANT THERAPY
     Dosage: AS REQUIRED
     Route: 042
  29. GLUCOSE [Suspect]
     Active Substance: DEXTROSE
     Indication: NUTRITIONAL SUPPLEMENTATION
     Dosage: AS REQUIRED
     Route: 042
  30. DALTEPARIN [Suspect]
     Active Substance: DALTEPARIN
     Indication: PULMONARY EMBOLISM
     Route: 065
  31. GABAPENTIN. [Suspect]
     Active Substance: GABAPENTIN
     Indication: NEURALGIA
     Dosage: NOT SPECIFIED
     Route: 048
  32. SODIUM CITRATE DIHYDRATE/WATER FOR INJECTION [Suspect]
     Active Substance: TRISODIUM CITRATE DIHYDRATE
     Indication: THROMBOSIS
     Dosage: 4GM/100ML?SOLUTION 0? UNASSIGNED?AS REQUIRED
     Route: 065
  33. LANTHANUM CARBONATE. [Suspect]
     Active Substance: LANTHANUM CARBONATE
     Indication: BLOOD PHOSPHORUS INCREASED
     Dosage: AS REQUIRED
     Route: 048
  34. METRONIDAZOLE. [Suspect]
     Active Substance: METRONIDAZOLE
     Indication: BACTERIAL INFECTION
     Dosage: NOT SPECIFIED?1 EVERY 8 HOURS
     Route: 048
  35. NOREPINEPHRINE. [Suspect]
     Active Substance: NOREPINEPHRINE
     Indication: STRESS
     Dosage: NOT SPECIFIED
     Route: 042
  36. PYRIDOXINE [Suspect]
     Active Substance: PYRIDOXINE
     Indication: VITAMIN SUPPLEMENTATION
     Route: 048
  37. FERRIC SODIUM GLUCONATE COMPLE [Suspect]
     Active Substance: SODIUM FERRIC GLUCONATE COMPLEX
     Indication: IRON DEFICIENCY
     Dosage: 1 EVERY 4 WEEKS
     Route: 042
  38. VILANTEROL TRIFENATATE/UMECLIDINIUM BROMIDE [Suspect]
     Active Substance: UMECLIDINIUM BROMIDE\VILANTEROL TRIFENATATE
     Indication: DYSPNOEA
     Route: 048

REACTIONS (15)
  - Hyponatraemia [Fatal]
  - Stress [Fatal]
  - Abdominal pain [Fatal]
  - Cardiogenic shock [Fatal]
  - General physical health deterioration [Fatal]
  - Nausea [Fatal]
  - Appendicolith [Fatal]
  - Sepsis [Fatal]
  - Vomiting [Fatal]
  - Off label use [Unknown]
  - Abdominal distension [Fatal]
  - Appendicitis [Fatal]
  - Ascites [Fatal]
  - Multiple organ dysfunction syndrome [Fatal]
  - Constipation [Fatal]
